FAERS Safety Report 14240564 (Version 1)
Quarter: 2017Q4

REPORT INFORMATION
  Report Type: Spontaneous
  Country: JP (occurrence: JP)
  Receive Date: 20171130
  Receipt Date: 20171130
  Transmission Date: 20180321
  Serious: Yes (Other)
  Sender: FDA-Public Use
  Company Number: JP-VIIV HEALTHCARE LIMITED-JP2017JPN180880

PATIENT
  Age: 3 Decade
  Sex: Male

DRUGS (2)
  1. TIVICAY [Suspect]
     Active Substance: DOLUTEGRAVIR SODIUM
     Dosage: UNK
     Route: 048
  2. TRUVADA [Concomitant]
     Active Substance: EMTRICITABINE\TENOFOVIR DISOPROXIL FUMARATE
     Dosage: UNK

REACTIONS (4)
  - Diarrhoea [Recovering/Resolving]
  - Nervous system disorder [Recovering/Resolving]
  - Loss of consciousness [Recovered/Resolved]
  - Headache [Recovering/Resolving]
